FAERS Safety Report 12328792 (Version 1)
Quarter: 2016Q2

REPORT INFORMATION
  Report Type: Spontaneous
  Country: US (occurrence: US)
  Receive Date: 20160503
  Receipt Date: 20160503
  Transmission Date: 20160815
  Serious: No
  Sender: FDA-Public Use
  Company Number: US-BEH-2015050799

PATIENT
  Age: 67 Year
  Sex: Female
  Weight: 55 kg

DRUGS (14)
  1. SYNTHROID [Concomitant]
     Active Substance: LEVOTHYROXINE SODIUM
  2. STRONTIUM CHLORIDE HEXAHYDRATE [Concomitant]
  3. DIPHENHYDRAMINE. [Concomitant]
     Active Substance: DIPHENHYDRAMINE
  4. VITAMIN D [Concomitant]
     Active Substance: CHOLECALCIFEROL
  5. NEXIUM [Concomitant]
     Active Substance: ESOMEPRAZOLE MAGNESIUM
  6. CALCIUM MAGNESIUM+D [Concomitant]
  7. HIZENTRA [Suspect]
     Active Substance: HUMAN IMMUNOGLOBULIN G
     Indication: IMMUNODEFICIENCY COMMON VARIABLE
     Route: 058
     Dates: start: 20150428
  8. ESTROGEN METHYLTESTOSTERONE [Concomitant]
  9. MULTIVITAMINS [Concomitant]
     Active Substance: VITAMINS
  10. ACETAMINOPHEN. [Concomitant]
     Active Substance: ACETAMINOPHEN
  11. PROGESTERONE. [Concomitant]
     Active Substance: PROGESTERONE
  12. VITAMIN B12 [Concomitant]
     Active Substance: CYANOCOBALAMIN
  13. VITAMIN B-100 COMPLEX [Concomitant]
  14. EPIPEN [Concomitant]
     Active Substance: EPINEPHRINE

REACTIONS (1)
  - Pruritus [Unknown]

NARRATIVE: CASE EVENT DATE: 20150428
